FAERS Safety Report 16864377 (Version 1)
Quarter: 2019Q3

REPORT INFORMATION
  Report Type: Spontaneous
  Country: US (occurrence: US)
  Receive Date: 20190928
  Receipt Date: 20190928
  Transmission Date: 20191005
  Serious: Yes (Hospitalization, Other)
  Sender: FDA-Public Use
  Company Number: US-ZYDUS-041259

PATIENT
  Age: 31 Year
  Sex: Female

DRUGS (1)
  1. NIFEDIPINE. [Suspect]
     Active Substance: NIFEDIPINE
     Indication: PROPHYLAXIS
     Dosage: TWO DOSES OF SHORT-ACTING 20MG NIFEDIPINE OVER 30 MINUTES
     Route: 065

REACTIONS (5)
  - Exposure during pregnancy [Unknown]
  - Shock [Unknown]
  - Electrocardiogram ST segment depression [Recovered/Resolved]
  - Hypotension [Recovered/Resolved]
  - Chest pain [Recovered/Resolved]
